FAERS Safety Report 24895449 (Version 1)
Quarter: 2025Q1

REPORT INFORMATION
  Report Type: Spontaneous
  Country: AU (occurrence: AU)
  Receive Date: 20250128
  Receipt Date: 20250128
  Transmission Date: 20250409
  Serious: Yes (Hospitalization)
  Sender: MYLAN
  Company Number: AU-MYLANLABS-2025M1006787

PATIENT
  Sex: Female

DRUGS (2)
  1. CLOZARIL [Suspect]
     Active Substance: CLOZAPINE
     Indication: Schizophrenia
     Route: 048
     Dates: start: 20180830
  2. CLOZARIL [Suspect]
     Active Substance: CLOZAPINE
     Route: 048

REACTIONS (2)
  - Hospitalisation [Unknown]
  - Antipsychotic drug level increased [Recovering/Resolving]
